FAERS Safety Report 4768251-4 (Version None)
Quarter: 2005Q3

REPORT INFORMATION
  Report Type: 
  Country: None (occurrence: None)
  Receive Date: 20050913
  Receipt Date: 20050830
  Transmission Date: 20060218
  Serious: Yes (Other)
  Sender: FDA-Public Use
  Company Number: GXKR2005BR01546

PATIENT
  Sex: Female

DRUGS (2)
  1. ATENOLOL [Suspect]
  2. NAPRIX (RAMIPRIL) [Concomitant]

REACTIONS (1)
  - HYPERTENSION [None]
